FAERS Safety Report 11265947 (Version 1)
Quarter: 2015Q3

REPORT INFORMATION
  Report Type: Spontaneous
  Country: TH (occurrence: TH)
  Receive Date: 20150713
  Receipt Date: 20150713
  Transmission Date: 20151125
  Serious: Yes (Death)
  Sender: FDA-Public Use
  Company Number: TH-ACTELION-A-CH2015-120842

PATIENT
  Age: 86 Year
  Sex: Female
  Weight: 40 kg

DRUGS (1)
  1. TRACLEER [Suspect]
     Active Substance: BOSENTAN
     Indication: PULMONARY ARTERIAL HYPERTENSION
     Dosage: 125 MG, BID
     Route: 048

REACTIONS (3)
  - Right ventricular failure [Fatal]
  - Disease progression [Fatal]
  - Pulmonary arterial hypertension [Fatal]
